FAERS Safety Report 16831655 (Version 1)
Quarter: 2019Q4

REPORT INFORMATION
  Report Type: Spontaneous
  Country: US (occurrence: US)
  Receive Date: 20190919
  Receipt Date: 20190919
  Transmission Date: 20200122
  Serious: Yes (Disabling)
  Sender: FDA-Public Use
  Company Number: None

PATIENT
  Age: 51 Year
  Sex: Female
  Weight: 68.4 kg

DRUGS (12)
  1. BACLOFEN. [Concomitant]
     Active Substance: BACLOFEN
  2. METRONIDAZOLE. [Concomitant]
     Active Substance: METRONIDAZOLE
  3. VITAMIN B COMPLEX [Concomitant]
     Active Substance: CYANOCOBALAMIN\DEXPANTHENOL\NIACINAMIDE\PYRIDOXINE HYDROCHLORIDE\RIBOFLAVIN 5^-PHOSPHATE SODIUM\THIAMINE HYDROCHLORIDE\VITAMIN B COMPLEX
  4. MULTI VITAMIN [Concomitant]
     Active Substance: VITAMINS
  5. AIMOVIG [Suspect]
     Active Substance: ERENUMAB-AOOE
     Indication: MIGRAINE
     Dosage: ?          QUANTITY:1 INJECTION(S);OTHER FREQUENCY:1 EVERY 28 DAYS;?
     Route: 058
     Dates: start: 20190424, end: 20190906
  6. TUMERIC [Concomitant]
     Active Substance: HERBALS\TURMERIC
  7. MAGNESIUM [Concomitant]
     Active Substance: MAGNESIUM
  8. LORATADINE. [Concomitant]
     Active Substance: LORATADINE
  9. BENADRYL [Concomitant]
     Active Substance: DIPHENHYDRAMINE HYDROCHLORIDE
  10. LEXAPRO [Concomitant]
     Active Substance: ESCITALOPRAM OXALATE
  11. ZANAFLEX [Concomitant]
     Active Substance: TIZANIDINE HYDROCHLORIDE
  12. VITAMIN D [Concomitant]
     Active Substance: VITAMIN D NOS

REACTIONS (23)
  - Tinnitus [None]
  - Weight increased [None]
  - Depression [None]
  - Suicidal ideation [None]
  - Peripheral swelling [None]
  - Oropharyngeal pain [None]
  - Pharyngeal swelling [None]
  - Urticaria [None]
  - Pain in jaw [None]
  - Joint swelling [None]
  - Hot flush [None]
  - Feeling abnormal [None]
  - Fatigue [None]
  - Nausea [None]
  - Chest pain [None]
  - Insomnia [None]
  - Dizziness [None]
  - Constipation [None]
  - Anxiety [None]
  - Vertigo [None]
  - Lethargy [None]
  - Alopecia [None]
  - Abdominal distension [None]

NARRATIVE: CASE EVENT DATE: 20190906
